FAERS Safety Report 6819237-7 (Version None)
Quarter: 2010Q2

REPORT INFORMATION
  Report Type: 
  Country: None (occurrence: None)
  Receive Date: 20100630
  Receipt Date: 20100618
  Transmission Date: 20101027
  Serious: Yes (Hospitalization)
  Sender: FDA-Public Use
  Company Number: 7001987

PATIENT
  Age: 60 Year
  Sex: Female

DRUGS (3)
  1. REBIF [Suspect]
     Indication: MULTIPLE SCLEROSIS
     Dosage: 44 MCG, 3 IN 1 WK, SUBCUTANEOUS
     Route: 058
     Dates: start: 20091206
  2. BYETTA [Concomitant]
  3. UNSPECIFIED DIABETIC MEDICATION (ORAL ANTIDIABETICS) [Concomitant]

REACTIONS (5)
  - DRUG DOSE OMISSION [None]
  - MULTIPLE SCLEROSIS RELAPSE [None]
  - OVARIAN NEOPLASM [None]
  - POLYMENORRHOEA [None]
  - UTERINE CANCER [None]
